FAERS Safety Report 25117904 (Version 1)
Quarter: 2025Q1

REPORT INFORMATION
  Report Type: Spontaneous
  Country: FR (occurrence: FR)
  Receive Date: 20250325
  Receipt Date: 20250325
  Transmission Date: 20250409
  Serious: Yes (Hospitalization, Other)
  Sender: MYLAN
  Company Number: FR-CHEPLA-2025003018

PATIENT
  Age: 24 Year
  Sex: Female

DRUGS (4)
  1. NOREPINEPHRINE [Suspect]
     Active Substance: NOREPINEPHRINE
     Indication: Hypotension
     Dosage: 0.4 MILLIGRAM, QH (0.4 MG/HOUR)
  2. NOREPINEPHRINE [Suspect]
     Active Substance: NOREPINEPHRINE
     Dosage: QH (LESS THAN 0.5  MG/HOUR)
  3. TRANEXAMIC ACID [Suspect]
     Active Substance: TRANEXAMIC ACID
     Indication: Traumatic haemorrhage
     Dosage: 600 MILLIGRAM, QH, (LOADING DOSE OF 600 MG INFUSED FOR ONE HOUR)
  4. TRANEXAMIC ACID [Suspect]
     Active Substance: TRANEXAMIC ACID
     Dosage: 1 GRAM, Q8H (LOADING DOSE OF 600 MG INFUSED FOR ONE HOUR, FOLLOWED BY A MAINTENANCE DOSE OF 1 G FOR

REACTIONS (2)
  - Acute kidney injury [Recovering/Resolving]
  - Renal cortical necrosis [Recovering/Resolving]
